FAERS Safety Report 16237500 (Version 1)
Quarter: 2019Q2

REPORT INFORMATION
  Report Type: Spontaneous
  Country: US (occurrence: US)
  Receive Date: 20190425
  Receipt Date: 20190425
  Transmission Date: 20190711
  Serious: Yes (Other)
  Sender: FDA-Public Use
  Company Number: US-JNJFOC-20190415584

PATIENT

DRUGS (1)
  1. XARELTO [Suspect]
     Active Substance: RIVAROXABAN
     Indication: PRODUCT USED FOR UNKNOWN INDICATION
     Route: 048
     Dates: start: 20150911, end: 20180317

REACTIONS (3)
  - Haematoma [Unknown]
  - Melaena [Unknown]
  - Cerebellar haemorrhage [Unknown]

NARRATIVE: CASE EVENT DATE: 2015
